FAERS Safety Report 20625256 (Version 1)
Quarter: 2022Q1

REPORT INFORMATION
  Report Type: Spontaneous
  Country: US (occurrence: US)
  Receive Date: 20220323
  Receipt Date: 20220323
  Transmission Date: 20220423
  Serious: No
  Sender: FDA-Public Use
  Company Number: US-GLAXOSMITHKLINE-US2022048118

PATIENT
  Sex: Female

DRUGS (1)
  1. ZEJULA [Suspect]
     Active Substance: NIRAPARIB
     Indication: Ovarian cancer
     Dosage: 200 MG, QD
     Route: 048
     Dates: start: 20210811

REACTIONS (5)
  - Dizziness [Unknown]
  - Nervousness [Unknown]
  - Heart rate increased [Unknown]
  - Diarrhoea [Unknown]
  - Gastrointestinal stoma complication [Unknown]
